FAERS Safety Report 18237333 (Version 2)
Quarter: 2020Q3

REPORT INFORMATION
  Report Type: Spontaneous
  Country: US (occurrence: US)
  Receive Date: 20200907
  Receipt Date: 20200911
  Transmission Date: 20201103
  Serious: Yes (Other)
  Sender: FDA-Public Use
  Company Number: US-PFIZER INC-2020337704

PATIENT
  Age: 55 Year
  Sex: Male
  Weight: 83.91 kg

DRUGS (2)
  1. KERYDIN [Suspect]
     Active Substance: TAVABOROLE
     Indication: ONYCHOMYCOSIS
     Dosage: UNK, 1X/DAY (APPLY TO AFFECTED AREA AT BEDTIME FOR 48 WEEKS)
     Route: 061
     Dates: end: 202008
  2. SUMATRIPTAN. [Concomitant]
     Active Substance: SUMATRIPTAN
     Dosage: UNK

REACTIONS (6)
  - Skin necrosis [Unknown]
  - Nail discolouration [Recovering/Resolving]
  - Wound [Recovering/Resolving]
  - Skin disorder [Recovering/Resolving]
  - Yellow skin [Recovering/Resolving]
  - Product complaint [Unknown]

NARRATIVE: CASE EVENT DATE: 202008
